FAERS Safety Report 14741263 (Version 2)
Quarter: 2018Q2

REPORT INFORMATION
  Report Type: Spontaneous
  Country: ES (occurrence: ES)
  Receive Date: 20180410
  Receipt Date: 20180416
  Transmission Date: 20180711
  Serious: Yes (Life-Threatening, Hospitalization)
  Sender: FDA-Public Use
  Company Number: ES-GLENMARK PHARMACEUTICALS-2018GMK034192

PATIENT
  Age: 58 Year
  Sex: Female

DRUGS (1)
  1. LEVOFLOXACIN. [Suspect]
     Active Substance: LEVOFLOXACIN
     Indication: RESPIRATORY TRACT INFECTION
     Dosage: UNK
     Route: 065

REACTIONS (5)
  - Anaphylactic reaction [Recovered/Resolved]
  - Kounis syndrome [Recovered/Resolved]
  - Ventricular fibrillation [Recovering/Resolving]
  - Acute myocardial infarction [Recovering/Resolving]
  - Cardiac arrest [Recovered/Resolved]
